FAERS Safety Report 10266104 (Version 1)
Quarter: 2014Q2

REPORT INFORMATION
  Report Type: Spontaneous
  Country: FR (occurrence: FR)
  Receive Date: 20140627
  Receipt Date: 20140627
  Transmission Date: 20141212
  Serious: Yes (Hospitalization, Other)
  Sender: FDA-Public Use
  Company Number: FR-CELGENEUS-056-POMAL-14062932

PATIENT
  Age: 86 Year
  Sex: Female

DRUGS (2)
  1. IMNOVID [Suspect]
     Indication: PLASMA CELL MYELOMA
     Dosage: 2 MILLIGRAM
     Route: 048
  2. IMNOVID [Suspect]
     Dosage: 1 MILLIGRAM
     Route: 048

REACTIONS (4)
  - Cerebrovascular accident [Unknown]
  - Pneumonia aspiration [Unknown]
  - Gastroenteritis [Unknown]
  - Urinary tract infection [Unknown]
